FAERS Safety Report 24362018 (Version 1)
Quarter: 2024Q3

REPORT INFORMATION
  Report Type: Spontaneous
  Country: CO (occurrence: CO)
  Receive Date: 20240925
  Receipt Date: 20240925
  Transmission Date: 20241016
  Serious: Yes (Other)
  Sender: REGENERON
  Company Number: CO-SA-2024SA274747

PATIENT
  Age: 62 Year
  Sex: Male

DRUGS (1)
  1. PRALUENT [Suspect]
     Active Substance: ALIROCUMAB
     Indication: Type IIa hyperlipidaemia
     Dosage: 75 MG, Q15D
     Route: 058
     Dates: start: 2021, end: 202408

REACTIONS (4)
  - Hepatitis [Unknown]
  - Hepatic steatosis [Unknown]
  - Breath odour [Unknown]
  - Tongue injury [Unknown]

NARRATIVE: CASE EVENT DATE: 20220101
